FAERS Safety Report 7515257-8 (Version None)
Quarter: 2011Q2

REPORT INFORMATION
  Report Type: 
  Country: None (occurrence: None)
  Receive Date: 20110601
  Receipt Date: 20100524
  Transmission Date: 20111010
  Serious: Yes (Other)
  Sender: FDA-Public Use
  Company Number: US-PFIZER INC-2010040386

PATIENT
  Sex: Female
  Weight: 130.2 kg

DRUGS (19)
  1. CELEBREX [Concomitant]
     Dosage: 200 MG, 2X/DAY
     Route: 048
  2. ADVAIR DISKUS 100/50 [Concomitant]
     Indication: BRONCHITIS CHRONIC
     Dosage: 100/50 UG TWO PUFFS A DAY
     Route: 055
  3. KLOR-CON [Concomitant]
     Dosage: 20 MEQ, DAILY
     Route: 048
  4. SYMBICORT [Concomitant]
     Dosage: UNK
     Route: 055
  5. SIMVASTATIN [Concomitant]
     Indication: BLOOD CHOLESTEROL INCREASED
     Dosage: 10 MG, DAILY
     Route: 048
  6. FERROUS SULFATE TAB [Concomitant]
     Dosage: 325 MG, DAILY
     Route: 048
  7. WELLBUTRIN [Concomitant]
     Dosage: UNK
  8. CHANTIX [Suspect]
     Dosage: 1 MG, DAILY
     Route: 048
     Dates: end: 20100301
  9. INDERAL LA [Concomitant]
     Dosage: 80 MG, 2X/DAY
     Route: 048
  10. GABAPENTIN [Concomitant]
     Dosage: 300 MG, AS NEEDED
     Route: 048
  11. CHANTIX [Suspect]
     Indication: SMOKING CESSATION THERAPY
     Dosage: 0.5 MG, DAILY
     Route: 048
     Dates: start: 20080101
  12. CHANTIX [Suspect]
     Dosage: 1 MG, 2X/DAY
     Route: 048
  13. CALCIUM WITH VITAMIN D [Concomitant]
     Dosage: 600 MG, DAILY
     Route: 048
  14. CHANTIX [Suspect]
     Dosage: UNK
     Dates: start: 20080401, end: 20100301
  15. LASIX [Concomitant]
     Indication: FLUID RETENTION
     Dosage: 40 MG, 3X/DAY
     Route: 048
  16. FOSAMAX [Concomitant]
     Dosage: 1200 MG, DAILY
     Route: 048
  17. OMEPRAZOLE [Concomitant]
     Dosage: 20 MG, DAILY
     Route: 048
  18. AMLODIPINE BESILATE [Concomitant]
     Dosage: 20 MG, DAILY
     Route: 048
  19. MONTELUKAST SODIUM [Concomitant]
     Dosage: 100 MG, DAILY
     Route: 048

REACTIONS (7)
  - MOOD SWINGS [None]
  - ANXIETY [None]
  - AGITATION [None]
  - IRRITABILITY [None]
  - DISSOCIATION [None]
  - ANGER [None]
  - ABNORMAL DREAMS [None]
